FAERS Safety Report 8967162 (Version 1)
Quarter: 2012Q4

REPORT INFORMATION
  Report Type: 
  Country: DK (occurrence: DK)
  Receive Date: 20121214
  Receipt Date: 20121214
  Transmission Date: 20130627
  Serious: Yes (Hospitalization)
  Sender: FDA-Public Use
  Company Number: PHHY2012DK113871

PATIENT
  Age: 61 Year
  Sex: Female

DRUGS (1)
  1. BIOCLAVID [Suspect]
     Indication: INFECTION
     Dosage: 2 DF, QD
     Route: 048
     Dates: start: 20110525, end: 20110627

REACTIONS (2)
  - Chest pain [Recovering/Resolving]
  - Hepatic enzyme increased [Recovering/Resolving]
